FAERS Safety Report 18288488 (Version 1)
Quarter: 2020Q3

REPORT INFORMATION
  Report Type: Spontaneous
  Country: GB (occurrence: GB)
  Receive Date: 20200921
  Receipt Date: 20200921
  Transmission Date: 20201103
  Serious: Yes (Disabling)
  Sender: FDA-Public Use
  Company Number: GB-ACCORD-201807

PATIENT
  Age: 78 Year
  Sex: Female
  Weight: 76 kg

DRUGS (12)
  1. BECLOMETASONE [Concomitant]
     Active Substance: BECLOMETHASONE DIPROPIONATE
     Indication: ASTHMA
     Route: 055
     Dates: start: 20200331
  2. AMOXICILLIN. [Concomitant]
     Active Substance: AMOXICILLIN
     Route: 048
     Dates: start: 20200902
  3. HYDROXOCOBALAMIN [Concomitant]
     Active Substance: HYDROXOCOBALAMIN
     Dosage: PERSONALLY ADMINIST...
     Route: 030
     Dates: start: 20200326
  4. OMEPRAZOLE. [Concomitant]
     Active Substance: OMEPRAZOLE
     Dates: start: 20200331
  5. HYALURONIC ACID [Concomitant]
     Active Substance: HYALURONIC ACID
     Indication: DRY EYE
     Dates: start: 20200331
  6. APIXABAN [Suspect]
     Active Substance: APIXABAN
     Indication: DEEP VEIN THROMBOSIS
     Route: 048
     Dates: start: 20200615
  7. ACETYLSALICYLIC ACID [Concomitant]
     Active Substance: ASPIRIN
     Dosage: WITH OR AFTER FOOD
     Route: 048
     Dates: start: 20200518, end: 20200615
  8. RIVAROXABAN [Concomitant]
     Active Substance: RIVAROXABAN
     Dosage: USE AS DIRECTED ? 3 MONTHS TREATMENT
     Dates: start: 20200612, end: 20200807
  9. DABIGATRAN [Concomitant]
     Active Substance: DABIGATRAN
     Route: 048
     Dates: start: 20200805, end: 20200902
  10. CINNARIZINE [Concomitant]
     Active Substance: CINNARIZINE
     Indication: NAUSEA
     Dates: start: 20200722, end: 20200809
  11. IPRATROPIUM [Concomitant]
     Active Substance: IPRATROPIUM
     Dosage: 1?2 PUFFS THREE TIME A DAY
     Route: 055
     Dates: start: 20200331
  12. CLEXANE [Concomitant]
     Active Substance: ENOXAPARIN SODIUM
     Dates: start: 20200825

REACTIONS (1)
  - Dyspnoea [Not Recovered/Not Resolved]

NARRATIVE: CASE EVENT DATE: 20200902
